FAERS Safety Report 25313523 (Version 1)
Quarter: 2025Q2

REPORT INFORMATION
  Report Type: Spontaneous
  Country: US (occurrence: None)
  Receive Date: 20250514
  Receipt Date: 20250514
  Transmission Date: 20250717
  Serious: Yes (Death)
  Sender: FDA-CTU
  Company Number: None

PATIENT
  Age: 44 Year
  Sex: Female

DRUGS (1)
  1. BOTOX [Suspect]
     Active Substance: ONABOTULINUMTOXINA
     Indication: Migraine
     Dosage: FREQ: INJECT 155 UNITS IN THE MUSCLE EVERY 45 DAYS
     Route: 030
     Dates: start: 20221122, end: 20250501

REACTIONS (1)
  - Death [None]

NARRATIVE: CASE EVENT DATE: 20250501
